FAERS Safety Report 11344697 (Version 1)
Quarter: 2015Q3

REPORT INFORMATION
  Report Type: Spontaneous
  Country: PL (occurrence: PL)
  Receive Date: 20150806
  Receipt Date: 20150806
  Transmission Date: 20151125
  Serious: Yes (Other)
  Sender: FDA-Public Use
  Company Number: PL-SA-2015SA112817

PATIENT
  Sex: Female
  Weight: 69 kg

DRUGS (2)
  1. ARAVA [Suspect]
     Active Substance: LEFLUNOMIDE
     Indication: RHEUMATOID ARTHRITIS
     Dosage: DOSE: 1X100MG FOR 3 DAYS, THEN 1X20MG
     Route: 048
     Dates: start: 20110728, end: 20110730
  2. ARAVA [Suspect]
     Active Substance: LEFLUNOMIDE
     Indication: RHEUMATOID ARTHRITIS
     Dosage: DOSE: 1X100MG FOR 3 DAYS, THEN 1X20MG
     Route: 048
     Dates: start: 20110731, end: 20111004

REACTIONS (1)
  - Transaminases increased [Recovered/Resolved]
